FAERS Safety Report 15200491 (Version 1)
Quarter: 2018Q3

REPORT INFORMATION
  Report Type: Other
  Country: DE (occurrence: DE)
  Receive Date: 20180726
  Receipt Date: 20180726
  Transmission Date: 20181010
  Serious: Yes (Congenital Anomaly, Other)
  Sender: FDA-Public Use
  Company Number: DE-MERCK KGAA-2052755

PATIENT

DRUGS (5)
  1. METRONIDAZOLE. [Suspect]
     Active Substance: METRONIDAZOLE
  2. SUMATRIPTAN. [Suspect]
     Active Substance: SUMATRIPTAN
  3. PARACETAMOL [Suspect]
     Active Substance: ACETAMINOPHEN
  4. METOCLOPRAMIDE. [Suspect]
     Active Substance: METOCLOPRAMIDE
  5. NOVOTHYROX [Suspect]
     Active Substance: LEVOTHYROXINE SODIUM
     Indication: PRODUCT USED FOR UNKNOWN INDICATION

REACTIONS (2)
  - Microcephaly [Unknown]
  - Foetal exposure during pregnancy [Recovered/Resolved]
